FAERS Safety Report 8914421 (Version 1)
Quarter: 2012Q4

REPORT INFORMATION
  Report Type: 
  Country: IT (occurrence: IT)
  Receive Date: 20121116
  Receipt Date: 20121116
  Transmission Date: 20130627
  Serious: Yes (Other)
  Sender: FDA-Public Use
  Company Number: IT-TEVA-369404ISR

PATIENT
  Age: 75 Year
  Sex: Male

DRUGS (2)
  1. BICALUTAMIDE [Suspect]
     Dosage: 50 Milligram Daily;
     Route: 048
     Dates: start: 20120926, end: 20121010
  2. LORAZEPAM [Concomitant]
     Dosage: 1 Dosage forms Daily;
     Route: 048

REACTIONS (5)
  - Urticaria [Recovered/Resolved]
  - Myalgia [Recovered/Resolved]
  - Tongue oedema [Recovered/Resolved]
  - Dysphagia [Recovered/Resolved]
  - Angioedema [Unknown]
